FAERS Safety Report 23485321 (Version 1)
Quarter: 2024Q1

REPORT INFORMATION
  Report Type: Spontaneous
  Country: US (occurrence: US)
  Receive Date: 20240206
  Receipt Date: 20240206
  Transmission Date: 20240410
  Serious: No
  Sender: FDA-Public Use
  Company Number: US-SA-SAC20240129000628

PATIENT
  Age: 23 Year
  Sex: Male

DRUGS (2)
  1. ELOCTATE [Suspect]
     Active Substance: EFMOROCTOCOG ALFA
     Dosage: 6136 U(+/-10%), BIW FOR PROPHYLACTICALLY
     Route: 058
  2. ELOCTATE [Suspect]
     Active Substance: EFMOROCTOCOG ALFA
     Dosage: 6136 U(+/-10%), BIW FOR PROPHYLACTICALLY
     Route: 058

REACTIONS (1)
  - Musculoskeletal stiffness [Unknown]
